FAERS Safety Report 4824500-5 (Version None)
Quarter: 2005Q4

REPORT INFORMATION
  Report Type: 
  Country: None (occurrence: None)
  Receive Date: 20051110
  Receipt Date: 20051103
  Transmission Date: 20060501
  Serious: Yes (Other)
  Sender: FDA-Public Use
  Company Number: GB-BOEHRINGER INGELHEIM PHARMACEUTICALS, INC.-2005-UK-02251UK

PATIENT
  Sex: Female

DRUGS (1)
  1. PRAMIPEXOLE [Suspect]
     Indication: PARKINSON'S DISEASE
     Dates: start: 20030601, end: 20050301

REACTIONS (2)
  - PATHOLOGICAL GAMBLING [None]
  - SUICIDE ATTEMPT [None]
